FAERS Safety Report 20057564 (Version 1)
Quarter: 2021Q4

REPORT INFORMATION
  Report Type: Spontaneous
  Country: US (occurrence: None)
  Receive Date: 20211110
  Receipt Date: 20211110
  Transmission Date: 20220304
  Serious: Yes (Life-Threatening, Disabling, Other)
  Sender: FDA-Public Use
  Company Number: None

PATIENT
  Age: 72 Year
  Sex: Female
  Weight: 66.15 kg

DRUGS (8)
  1. ESTRADIOL [Suspect]
     Active Substance: ESTRADIOL
     Indication: Hormone replacement therapy
     Dosage: OTHER QUANTITY : 1 PATCH(ES);?OTHER FREQUENCY : WEEK;?
     Route: 062
     Dates: start: 20050101, end: 20111220
  2. FLECAINIDE ACETATE 50MG [Concomitant]
  3. CITRUCEL [Concomitant]
     Active Substance: METHYLCELLULOSE (4000 MPA.S)
  4. MIRALAX [Suspect]
     Active Substance: POLYETHYLENE GLYCOL 3350
     Indication: Product used for unknown indication
  5. VITAMIN D [Concomitant]
     Active Substance: VITAMIN D NOS
  6. FLAX SEED [Concomitant]
     Active Substance: FLAX SEED
  7. HEMP HEARTS [Concomitant]
  8. FLONASE [Concomitant]
     Active Substance: FLUTICASONE PROPIONATE

REACTIONS (4)
  - Malignant mesenteric neoplasm [None]
  - Neoplasm malignant [None]
  - Cancer pain [None]
  - Application site pain [None]

NARRATIVE: CASE EVENT DATE: 20211108
